FAERS Safety Report 5836791-2 (Version None)
Quarter: 2008Q3

REPORT INFORMATION
  Report Type: 
  Country: None (occurrence: None)
  Receive Date: 20080806
  Receipt Date: 20080806
  Transmission Date: 20090109
  Serious: No
  Sender: FDA-Public Use
  Company Number: None

PATIENT
  Sex: Male
  Weight: 109.3169 kg

DRUGS (1)
  1. LOTREL [Suspect]
     Indication: HYPERTENSION
     Dosage: 1 PILL EVERY DAY PO
     Route: 048
     Dates: start: 20080515, end: 20080716

REACTIONS (2)
  - LEUKOCYTOCLASTIC VASCULITIS [None]
  - PETECHIAE [None]
